FAERS Safety Report 8197779-2 (Version None)
Quarter: 2012Q1

REPORT INFORMATION
  Report Type: 
  Country: None (occurrence: None)
  Receive Date: 20120309
  Receipt Date: 20120302
  Transmission Date: 20120608
  Serious: Yes (Life-Threatening, Hospitalization)
  Sender: FDA-Public Use
  Company Number: CZ-BRISTOL-MYERS SQUIBB COMPANY-16432130

PATIENT
  Age: 71 Year
  Sex: Female

DRUGS (5)
  1. PLACEBO [Suspect]
     Indication: TYPE 2 DIABETES MELLITUS
     Dosage: INTER ON 27DEC11 AND RESTAT ON 27FEB12
     Dates: start: 20100525
  2. METFORMIN HCL [Suspect]
     Indication: TYPE 2 DIABETES MELLITUS
     Dates: end: 20120117
  3. NOVOMIX [Suspect]
     Indication: TYPE 2 DIABETES MELLITUS
  4. ASPIRIN [Concomitant]
  5. BLINDED: SAXAGLIPTIN [Suspect]
     Indication: TYPE 2 DIABETES MELLITUS
     Dosage: INTER ON 27DEC11 AND RESTAT ON 27FEB12
     Dates: start: 20100525

REACTIONS (2)
  - SYNCOPE [None]
  - HYPOGLYCAEMIA [None]
